FAERS Safety Report 5466731-X (Version None)
Quarter: 2007Q3

REPORT INFORMATION
  Report Type: 
  Country: None (occurrence: None)
  Receive Date: 20070924
  Receipt Date: 20070924
  Transmission Date: 20080115
  Serious: No
  Sender: FDA-Public Use
  Company Number: None

PATIENT
  Age: 25 Year
  Sex: Female
  Weight: 62.1428 kg

DRUGS (1)
  1. HALOPERIDOL [Suspect]
     Dosage: 5MG PRN PO  2 DOSES
     Route: 048

REACTIONS (5)
  - MENTAL STATUS CHANGES [None]
  - MUSCLE RIGIDITY [None]
  - NUCHAL RIGIDITY [None]
  - OCULOGYRIC CRISIS [None]
  - RESTLESSNESS [None]
